FAERS Safety Report 9118758 (Version 1)
Quarter: 2013Q1

REPORT INFORMATION
  Report Type: Spontaneous
  Country: US (occurrence: US)
  Receive Date: 20130226
  Receipt Date: 20130226
  Transmission Date: 20140127
  Serious: Yes (Hospitalization, Other)
  Sender: FDA-Public Use
  Company Number: US-UCBSA-078757

PATIENT
  Age: 20 None
  Sex: Male
  Weight: 122.5 kg

DRUGS (3)
  1. KEPPRA XR [Suspect]
     Dates: start: 2009, end: 201302
  2. KEPPRA [Suspect]
     Indication: CONVULSION
     Route: 042
     Dates: start: 201302
  3. O2 [Concomitant]
     Dates: start: 201202

REACTIONS (4)
  - Grand mal convulsion [Not Recovered/Not Resolved]
  - Convulsion [Not Recovered/Not Resolved]
  - Weight decreased [Unknown]
  - Inappropriate schedule of drug administration [Recovered/Resolved]
